FAERS Safety Report 18586698 (Version 1)
Quarter: 2020Q4

REPORT INFORMATION
  Report Type: Spontaneous
  Country: DE (occurrence: DE)
  Receive Date: 20201207
  Receipt Date: 20201207
  Transmission Date: 20210114
  Serious: Yes (Death, Other)
  Sender: FDA-Public Use
  Company Number: NVSC2020DE325075

PATIENT
  Age: 27 Year
  Sex: Male

DRUGS (4)
  1. TRAMETINIB [Suspect]
     Active Substance: TRAMETINIB
     Indication: BRAF GENE MUTATION
  2. DABRAFENIB [Suspect]
     Active Substance: DABRAFENIB
     Indication: BRAF GENE MUTATION
  3. TRAMETINIB [Suspect]
     Active Substance: TRAMETINIB
     Indication: ACINAR CELL CARCINOMA OF PANCREAS
     Dosage: UNK
     Route: 065
  4. DABRAFENIB [Suspect]
     Active Substance: DABRAFENIB
     Indication: ACINAR CELL CARCINOMA OF PANCREAS
     Dosage: UNK
     Route: 065

REACTIONS (6)
  - Dysphagia [Unknown]
  - Pyrexia [Unknown]
  - Acinar cell carcinoma of pancreas [Unknown]
  - Malignant neoplasm progression [Unknown]
  - Malabsorption [Unknown]
  - Product use in unapproved indication [Unknown]
